FAERS Safety Report 9807904 (Version 10)
Quarter: 2015Q4

REPORT INFORMATION
  Report Type: Report from Study
  Country: US (occurrence: US)
  Receive Date: 20140110
  Receipt Date: 20151124
  Transmission Date: 20160305
  Serious: Yes (Hospitalization, Other)
  Sender: FDA-Public Use
  Company Number: US-SA-2013SA115898

PATIENT
  Age: 39 Year
  Sex: Female

DRUGS (20)
  1. AUBAGIO [Suspect]
     Active Substance: TERIFLUNOMIDE
     Indication: MULTIPLE SCLEROSIS
     Route: 048
  2. BIOTIN [Concomitant]
     Active Substance: BIOTIN
     Dosage: STRENGHT: 300 MCG
  3. MORPHINE SULFATE. [Concomitant]
     Active Substance: MORPHINE SULFATE
     Dosage: ER
  4. LYRICA [Concomitant]
     Active Substance: PREGABALIN
  5. AUBAGIO [Suspect]
     Active Substance: TERIFLUNOMIDE
     Indication: MULTIPLE SCLEROSIS
     Route: 048
     Dates: start: 20131023
  6. BACLOFEN. [Concomitant]
     Active Substance: BACLOFEN
  7. MORPHINE [Concomitant]
     Active Substance: MORPHINE
  8. OXCARBAZEPINE. [Concomitant]
     Active Substance: OXCARBAZEPINE
  9. PRISTIQ EXTENDED RELEASE [Concomitant]
     Active Substance: DESVENLAFAXINE SUCCINATE
  10. AUBAGIO [Suspect]
     Active Substance: TERIFLUNOMIDE
     Indication: RELAPSING-REMITTING MULTIPLE SCLEROSIS
     Route: 048
  11. OXYBUTYNIN [Concomitant]
     Active Substance: OXYBUTYNIN
  12. SELENIUM [Concomitant]
     Active Substance: SELENIUM
  13. AMPYRA [Concomitant]
     Active Substance: DALFAMPRIDINE
     Indication: APPETITE DISORDER
  14. MEGACE [Concomitant]
     Active Substance: MEGESTROL ACETATE
     Indication: APPETITE DISORDER
  15. TIZANIDINE HYDROCHLORIDE. [Concomitant]
     Active Substance: TIZANIDINE HYDROCHLORIDE
  16. AUBAGIO [Suspect]
     Active Substance: TERIFLUNOMIDE
     Indication: RELAPSING-REMITTING MULTIPLE SCLEROSIS
     Route: 048
     Dates: start: 20131023
  17. OXYBUTYNIN CHLORIDE. [Concomitant]
     Active Substance: OXYBUTYNIN CHLORIDE
     Dosage: ER
  18. HYDROCODONE W/ACETAMINOPHEN [Concomitant]
     Active Substance: ACETAMINOPHEN\HYDROCODONE BITARTRATE
  19. DEXAMFETAMINE/AMFETAMINE [Concomitant]
  20. GRALISE [Concomitant]
     Active Substance: GABAPENTIN
     Dosage: STAR MIS?300/600

REACTIONS (22)
  - Speech disorder [Unknown]
  - Rhinitis [Unknown]
  - Alopecia [Not Recovered/Not Resolved]
  - Multiple sclerosis relapse [Unknown]
  - Memory impairment [Not Recovered/Not Resolved]
  - Dry skin [Unknown]
  - Rhinorrhoea [Unknown]
  - Pyrexia [Unknown]
  - Ill-defined disorder [Recovered/Resolved]
  - Cough [Unknown]
  - Vomiting [Recovered/Resolved]
  - Anxiety [Not Recovered/Not Resolved]
  - Diarrhoea [Not Recovered/Not Resolved]
  - Malaise [Not Recovered/Not Resolved]
  - Pharyngeal erythema [Unknown]
  - Aphonia [Recovered/Resolved]
  - Depression [Not Recovered/Not Resolved]
  - Fall [Recovered/Resolved]
  - Dry throat [Unknown]
  - Incontinence [Unknown]
  - Lip dry [Unknown]
  - Drug dose omission [Unknown]

NARRATIVE: CASE EVENT DATE: 201401
